FAERS Safety Report 14477147 (Version 1)
Quarter: 2018Q1

REPORT INFORMATION
  Report Type: Report from Study
  Country: US (occurrence: US)
  Receive Date: 20180201
  Receipt Date: 20180201
  Transmission Date: 20180509
  Serious: No
  Sender: FDA-Public Use
  Company Number: US-EXELIXIS-CABO-17010933

PATIENT
  Sex: Male

DRUGS (3)
  1. CABOMETYX [Suspect]
     Active Substance: CABOZANTINIB S-MALATE
     Indication: RENAL CANCER
     Dosage: 60 MG, QD
     Route: 048
     Dates: start: 20170516, end: 2017
  2. METFORMIN [Concomitant]
     Active Substance: METFORMIN HYDROCHLORIDE
  3. CABOMETYX [Suspect]
     Active Substance: CABOZANTINIB S-MALATE
     Indication: METASTASES TO BONE
     Dosage: 20 MG, QD
     Route: 048
     Dates: start: 2017

REACTIONS (12)
  - Eating disorder [Unknown]
  - Glossodynia [Recovering/Resolving]
  - Poor quality sleep [Unknown]
  - Pain of skin [Not Recovered/Not Resolved]
  - Weight decreased [Unknown]
  - Hypersomnia [Unknown]
  - Depression [Unknown]
  - Oral pain [Recovering/Resolving]
  - Dry skin [Not Recovered/Not Resolved]
  - Dry mouth [Unknown]
  - Acne [Not Recovered/Not Resolved]
  - Dysphagia [Recovering/Resolving]
